FAERS Safety Report 23331390 (Version 1)
Quarter: 2023Q4

REPORT INFORMATION
  Report Type: Report from Study
  Country: GR (occurrence: GR)
  Receive Date: 20231222
  Receipt Date: 20231222
  Transmission Date: 20240110
  Serious: Yes (Hospitalization, Other)
  Sender: FDA-Public Use
  Company Number: GR-TAKEDA-2023TUS122702

PATIENT
  Age: 53 Year
  Sex: Male

DRUGS (3)
  1. PARATHYROID HORMONE [Suspect]
     Active Substance: PARATHYROID HORMONE
     Indication: Congenital hypoparathyroidism
     Dosage: 100 MILLIGRAM, QD
     Route: 065
  2. PARATHYROID HORMONE [Suspect]
     Active Substance: PARATHYROID HORMONE
     Indication: Congenital hypoparathyroidism
     Dosage: 100 MILLIGRAM, QD
     Route: 065
  3. PARATHYROID HORMONE [Suspect]
     Active Substance: PARATHYROID HORMONE
     Indication: Congenital hypoparathyroidism
     Dosage: 100 MILLIGRAM, QD
     Route: 065

REACTIONS (5)
  - Intestinal obstruction [Unknown]
  - Blood potassium increased [Unknown]
  - Flatulence [Unknown]
  - Blood calcium increased [Unknown]
  - Expired device used [Unknown]

NARRATIVE: CASE EVENT DATE: 20231001
